FAERS Safety Report 24954978 (Version 2)
Quarter: 2025Q1

REPORT INFORMATION
  Report Type: Spontaneous
  Country: GB (occurrence: GB)
  Receive Date: 20250211
  Receipt Date: 20250319
  Transmission Date: 20250408
  Serious: Yes (Disabling, Other)
  Sender: ACCORD
  Company Number: None

PATIENT
  Age: 86 Year

DRUGS (1)
  1. ROSUVASTATIN CALCIUM [Suspect]
     Active Substance: ROSUVASTATIN CALCIUM
     Indication: Adverse drug reaction
     Dosage: IN AM

REACTIONS (1)
  - Muscle spasms [Not Recovered/Not Resolved]
